FAERS Safety Report 4740937-7 (Version None)
Quarter: 2005Q3

REPORT INFORMATION
  Report Type: 
  Country: None (occurrence: None)
  Receive Date: 20050729
  Receipt Date: 20050504
  Transmission Date: 20060218
  Serious: Yes (Other)
  Sender: FDA-Public Use
  Company Number: US-2005-002243

PATIENT
  Sex: Female

DRUGS (10)
  1. MAGNEVIST [Suspect]
     Indication: NUCLEAR MAGNETIC RESONANCE IMAGING ABDOMINAL
     Dosage: 20 ML, 1 DOSE, INTRAVENOUS
     Route: 042
     Dates: start: 20050201, end: 20050201
  2. POTASSIUM CHLORIDE [Concomitant]
  3. ATENOLOL [Concomitant]
  4. PAXIL [Concomitant]
  5. PRAVACHOL [Concomitant]
  6. PROTONIX [Concomitant]
  7. MEGACE [Concomitant]
  8. PROCRIT [Concomitant]
  9. VANCOMYCIN [Concomitant]
  10. DIFLUCAN [Concomitant]

REACTIONS (2)
  - INJECTION SITE EXTRAVASATION [None]
  - INJECTION SITE REACTION [None]
